FAERS Safety Report 9143929 (Version 1)
Quarter: 2013Q1

REPORT INFORMATION
  Report Type: Report from Study
  Country: AU (occurrence: AU)
  Receive Date: 20130306
  Receipt Date: 20130306
  Transmission Date: 20140127
  Serious: Yes (Other)
  Sender: FDA-Public Use
  Company Number: AU-ROCHE-1196949

PATIENT
  Sex: Female

DRUGS (3)
  1. ACTEMRA [Suspect]
     Indication: RHEUMATOID ARTHRITIS
     Route: 042
     Dates: start: 20120928
  2. PREDNISOLONE [Concomitant]
     Indication: ARTHRALGIA
     Route: 048
  3. NEXIUM [Concomitant]
     Route: 048

REACTIONS (4)
  - Arthralgia [Not Recovered/Not Resolved]
  - Dry skin [Recovering/Resolving]
  - Onychoclasis [Not Recovered/Not Resolved]
  - Acne [Not Recovered/Not Resolved]
